FAERS Safety Report 8843776 (Version 2)
Quarter: 2012Q4

REPORT INFORMATION
  Report Type: 
  Country: US (occurrence: US)
  Receive Date: 20121016
  Receipt Date: 20121204
  Transmission Date: 20130627
  Serious: Yes (Other)
  Sender: FDA-Public Use
  Company Number: US-TEVA-364030USA

PATIENT
  Age: 51 Year
  Sex: Male

DRUGS (1)
  1. COPAXONE [Suspect]
     Indication: MULTIPLE SCLEROSIS
     Dates: start: 20120503

REACTIONS (4)
  - Eye movement disorder [Recovered/Resolved]
  - Oxygen saturation decreased [Recovering/Resolving]
  - Sudden hearing loss [Unknown]
  - Presyncope [Recovered/Resolved]
